FAERS Safety Report 9628079 (Version 4)
Quarter: 2015Q2

REPORT INFORMATION
  Report Type: Spontaneous
  Country: FR (occurrence: FR)
  Receive Date: 20131017
  Receipt Date: 20150410
  Transmission Date: 20150821
  Serious: Yes (Death, Hospitalization, Other)
  Sender: FDA-Public Use
  Company Number: FR-AMGEN-FRASP2013047252

PATIENT
  Age: 59 Year
  Sex: Female

DRUGS (12)
  1. ZANIDIP [Concomitant]
     Active Substance: LERCANIDIPINE HYDROCHLORIDE
     Dosage: 20 MG, UNK
  2. FUMAFER [Concomitant]
     Active Substance: FERROUS FUMARATE
  3. KAYEXALATE [Concomitant]
     Active Substance: SODIUM POLYSTYRENE SULFONATE
  4. LYRICA [Concomitant]
     Active Substance: PREGABALIN
  5. OROCAL VITAMINE D3 [Concomitant]
  6. BISOPROLOL [Concomitant]
     Active Substance: BISOPROLOL
     Dosage: 10 UNK, UNK
  7. UN-ALFA [Concomitant]
  8. BICARBONATE DE SODIUM AGUETTANT [Concomitant]
  9. ARANESP [Concomitant]
     Active Substance: DARBEPOETIN ALFA
  10. XGEVA [Suspect]
     Active Substance: DENOSUMAB
     Indication: METASTASES TO BONE
     Dosage: 120 MG, UNK
     Route: 058
     Dates: start: 20130530
  11. VITAMIN C [Concomitant]
     Active Substance: ASCORBIC ACID
  12. OMEPRAZOLE. [Concomitant]
     Active Substance: OMEPRAZOLE
     Dosage: 20 UNK, UNK

REACTIONS (2)
  - Hypocalcaemia [Unknown]
  - Cardiac failure [Fatal]

NARRATIVE: CASE EVENT DATE: 20130612
